FAERS Safety Report 6546408-X (Version None)
Quarter: 2010Q1

REPORT INFORMATION
  Report Type: 
  Country: None (occurrence: None)
  Receive Date: 20100122
  Receipt Date: 20100111
  Transmission Date: 20100710
  Serious: Yes (Death, Hospitalization, Other)
  Sender: FDA-Public Use
  Company Number: US-ALEXION-A200900947

PATIENT
  Sex: Female

DRUGS (8)
  1. SOLIRIS [Suspect]
     Indication: PAROXYSMAL NOCTURNAL HAEMOGLOBINURIA
     Dosage: 600 MG, QW
     Route: 042
     Dates: start: 20080916, end: 20081001
  2. SOLIRIS [Suspect]
     Dosage: 900 MG, Q2W
     Route: 042
     Dates: start: 20081007, end: 20091021
  3. PROCRIT                            /00909301/ [Concomitant]
     Dosage: UNK
     Route: 030
  4. LORAZEPAM [Concomitant]
     Dosage: UNK
     Route: 048
  5. FIORICET [Concomitant]
     Dosage: UNK
     Route: 048
  6. FOLIC ACID [Concomitant]
     Dosage: UNK
     Route: 048
  7. METFORMIN [Concomitant]
     Dosage: UNK
     Route: 048
  8. DESOGEN                            /00197402/ [Concomitant]
     Dosage: UNK
     Route: 030

REACTIONS (3)
  - CELLULITIS [None]
  - CEREBRAL HAEMORRHAGE [None]
  - HYPERTENSION [None]
